FAERS Safety Report 11352529 (Version 1)
Quarter: 2015Q3

REPORT INFORMATION
  Report Type: Spontaneous
  Country: US (occurrence: US)
  Receive Date: 20150807
  Receipt Date: 20150807
  Transmission Date: 20151125
  Serious: No
  Sender: FDA-Public Use
  Company Number: US-JNJFOC-20141119322

PATIENT
  Age: 71 Year
  Sex: Female
  Weight: 49.9 kg

DRUGS (3)
  1. NORVASC [Concomitant]
     Active Substance: AMLODIPINE BESYLATE
     Indication: BLOOD PRESSURE MEASUREMENT
     Route: 065
  2. WOMENS ROGAINE [Suspect]
     Active Substance: MINOXIDIL
     Route: 061
  3. WOMENS ROGAINE [Suspect]
     Active Substance: MINOXIDIL
     Indication: HAIR GROWTH ABNORMAL
     Dosage: TWICE A DAY FOR TWO DAYS; TOTAL OF FOUR TIMES
     Route: 061
     Dates: start: 20141122, end: 20141123

REACTIONS (4)
  - Hyperaesthesia [Recovered/Resolved]
  - Hair texture abnormal [Unknown]
  - Paraesthesia [Unknown]
  - Dry skin [Unknown]

NARRATIVE: CASE EVENT DATE: 20141122
